FAERS Safety Report 8990121 (Version 1)
Quarter: 2012Q4

REPORT INFORMATION
  Report Type: Report from Study
  Country: US (occurrence: US)
  Receive Date: 20121228
  Receipt Date: 20121228
  Transmission Date: 20130627
  Serious: Yes (Hospitalization)
  Sender: FDA-Public Use
  Company Number: US-JNJFOC-20121211525

PATIENT
  Sex: Female
  Weight: 50 kg

DRUGS (8)
  1. REMICADE [Suspect]
     Indication: CROHN^S DISEASE
     Route: 042
     Dates: start: 20061120
  2. CIMZIA [Concomitant]
     Dates: start: 20110217
  3. PREDNISONE [Concomitant]
  4. 5-ASA [Concomitant]
     Route: 048
  5. VITAMIN B12 [Concomitant]
  6. BIOFERMIN [Concomitant]
  7. ZYRTEC [Concomitant]
  8. HYDROCORTISONE [Concomitant]

REACTIONS (1)
  - Crohn^s disease [Recovered/Resolved]
